FAERS Safety Report 19455451 (Version 1)
Quarter: 2021Q2

REPORT INFORMATION
  Report Type: Spontaneous
  Country: US (occurrence: US)
  Receive Date: 20210624
  Receipt Date: 20210624
  Transmission Date: 20210717
  Serious: Yes (Hospitalization)
  Sender: FDA-Public Use
  Company Number: None

PATIENT
  Age: 52 Year
  Sex: Female
  Weight: 69.3 kg

DRUGS (3)
  1. HERCEPTIN [Suspect]
     Active Substance: TRASTUZUMAB
     Dates: end: 20210611
  2. TAXOTERE [Suspect]
     Active Substance: DOCETAXEL
     Dates: end: 20210611
  3. PERTUZUMAB. [Suspect]
     Active Substance: PERTUZUMAB
     Dates: end: 20210611

REACTIONS (10)
  - Chest pain [None]
  - Rash [None]
  - Chills [None]
  - Haematochezia [None]
  - Febrile neutropenia [None]
  - Headache [None]
  - Decreased appetite [None]
  - Neck pain [None]
  - Cough [None]
  - Stomatitis [None]

NARRATIVE: CASE EVENT DATE: 20210616
